FAERS Safety Report 6273783-6 (Version None)
Quarter: 2009Q3

REPORT INFORMATION
  Report Type: 
  Country: None (occurrence: None)
  Receive Date: 20090720
  Receipt Date: 20090713
  Transmission Date: 20100115
  Serious: Yes (Other)
  Sender: FDA-Public Use
  Company Number: B0577134A

PATIENT
  Sex: Female
  Weight: 63.7 kg

DRUGS (7)
  1. LAPATINIB [Suspect]
     Indication: BREAST CANCER
     Dosage: 1500MG PER DAY
     Route: 048
     Dates: start: 20090428
  2. PACLITAXEL [Suspect]
     Indication: BREAST CANCER
     Dosage: 80MGM2 WEEKLY
     Route: 042
     Dates: start: 20090427
  3. ONDANSETRON [Suspect]
     Indication: PREMEDICATION
     Dosage: 8MG WEEKLY
     Route: 042
     Dates: start: 20090427
  4. METOCLOPRAMIDE [Suspect]
     Indication: PREMEDICATION
     Dosage: 10MG WEEKLY
     Route: 048
     Dates: start: 20090427
  5. DEXAMETHASONE [Suspect]
     Indication: PREMEDICATION
     Dosage: 12MG WEEKLY
     Route: 048
     Dates: start: 20090427
  6. BENADRYL [Suspect]
     Indication: PREMEDICATION
     Dosage: 50MG WEEKLY
     Route: 048
     Dates: start: 20090427
  7. ZANTAC [Suspect]
     Indication: PREMEDICATION
     Dosage: 150MG WEEKLY
     Route: 048
     Dates: start: 20090427

REACTIONS (2)
  - EXCORIATION [None]
  - RASH [None]
